FAERS Safety Report 12818698 (Version 1)
Quarter: 2016Q4

REPORT INFORMATION
  Report Type: Report from Study
  Country: US (occurrence: US)
  Receive Date: 20161006
  Receipt Date: 20161006
  Transmission Date: 20170207
  Serious: Yes (Hospitalization)
  Sender: FDA-Public Use
  Company Number: US-MALLINCKRODT-T201604867

PATIENT
  Sex: Female

DRUGS (2)
  1. REPOSITORY CORTICOTROPIN INJECTION [Suspect]
     Active Substance: CORTICOTROPIN
     Indication: SYSTEMIC LUPUS ERYTHEMATOSUS
     Dosage: 80 UNITS TWICE WEEKLY (WED/SAT)
     Route: 058
     Dates: start: 20151014
  2. PREDNISONE. [Concomitant]
     Active Substance: PREDNISONE
     Dosage: UNK DOSE/FREQUENCY - WEANED AND THEN STOPPED

REACTIONS (3)
  - Oedema peripheral [Recovered/Resolved]
  - Renal failure [Recovered/Resolved]
  - Cardiac failure congestive [Recovered/Resolved]

NARRATIVE: CASE EVENT DATE: 2016
